FAERS Safety Report 10162726 (Version 6)
Quarter: 2020Q4

REPORT INFORMATION
  Report Type: Spontaneous
  Country: US (occurrence: US)
  Receive Date: 20140509
  Receipt Date: 20201117
  Transmission Date: 20210113
  Serious: Yes (Other)
  Sender: FDA-Public Use
  Company Number: US-PFIZER INC-2014127765

PATIENT
  Age: 65 Year
  Sex: Female

DRUGS (3)
  1. LYRICA [Suspect]
     Active Substance: PREGABALIN
     Indication: NEUROPATHY PERIPHERAL
  2. LYRICA [Suspect]
     Active Substance: PREGABALIN
     Indication: FIBROMYALGIA
     Dosage: UNK
  3. LYRICA [Suspect]
     Active Substance: PREGABALIN
     Indication: NERVE INJURY
     Dosage: 50 MG, 2X/DAY
     Route: 048
     Dates: start: 20190403

REACTIONS (7)
  - Fall [Unknown]
  - Confusional state [Unknown]
  - Upper limb fracture [Unknown]
  - Therapeutic product effect incomplete [Unknown]
  - Depression [Unknown]
  - Femur fracture [Unknown]
  - Mental impairment [Unknown]

NARRATIVE: CASE EVENT DATE: 2014
